FAERS Safety Report 25508967 (Version 1)
Quarter: 2025Q3

REPORT INFORMATION
  Report Type: Spontaneous
  Country: EU (occurrence: EU)
  Receive Date: 20250703
  Receipt Date: 20250703
  Transmission Date: 20251020
  Serious: Yes (Death)
  Sender: AUROBINDO
  Company Number: EU-ROCHE-10000154076

PATIENT
  Age: 71 Year
  Sex: Male
  Weight: 112 kg

DRUGS (3)
  1. CARBOPLATIN [Suspect]
     Active Substance: CARBOPLATIN
     Indication: Neoplasm malignant
     Route: 042
     Dates: start: 20240702, end: 20241009
  2. PACLITAXEL [Suspect]
     Active Substance: PACLITAXEL
     Indication: Neoplasm malignant
     Dosage: 200 MILLIGRAM, EVERY WEEK, ON 09-OCT-2024, RECEIVED MOST RECENT DOSE 200 MG OF NAPPACLITAXEL PRIOR T
     Route: 042
     Dates: start: 20240702, end: 20241003
  3. PEMBROLIZUMAB [Suspect]
     Active Substance: PEMBROLIZUMAB
     Indication: Neoplasm malignant
     Dosage: 200 MILLIGRAM, EVERY WEEK, ON 09-COT-2024, RECEIVED MOST RECENT DOSE 200 MG OF PEMBROLIZUMAB PRIOR T
     Route: 042
     Dates: start: 20240731

REACTIONS (2)
  - Aspartate aminotransferase [Fatal]
  - Liver function test increased [Not Recovered/Not Resolved]

NARRATIVE: CASE EVENT DATE: 20241203
